FAERS Safety Report 6196016-8 (Version None)
Quarter: 2009Q2

REPORT INFORMATION
  Report Type: 
  Country: None (occurrence: None)
  Receive Date: 20090520
  Receipt Date: 20050211
  Transmission Date: 20091009
  Serious: Yes (Hospitalization)
  Sender: FDA-Public Use
  Company Number: NL-ROCHE-599803

PATIENT
  Sex: Male

DRUGS (10)
  1. CAPECITABINE [Suspect]
     Indication: COLON CANCER METASTATIC
     Dosage: DOSE REPORTED AS 2 X 2150 MG
     Route: 048
     Dates: start: 20041217
  2. CAPECITABINE [Suspect]
     Dosage: DOSE REPORTED AS 2 X 2150 MG
     Route: 048
     Dates: start: 20050107
  3. CAPECITABINE [Suspect]
     Dosage: DOSE REPORTED AS 2 X 2150 MG
     Route: 048
     Dates: start: 20050128, end: 20050205
  4. IRINOTECAN HCL [Suspect]
     Indication: COLON CANCER METASTATIC
     Route: 065
     Dates: start: 20041217
  5. IRINOTECAN HCL [Suspect]
     Route: 065
     Dates: start: 20050107
  6. IRINOTECAN HCL [Suspect]
     Route: 065
     Dates: start: 20050128
  7. METFORMIN HYDROCHLORIDE [Concomitant]
     Dosage: DOSE REPORTED AS 2X500 MG
  8. ATENOLOL [Concomitant]
     Dosage: DOSE REPORTED 1 X 100 MG
  9. ALLOPURINOL [Concomitant]
     Dosage: DOSE REPORTED AS 1 X 300 MG
  10. FERROGLUKONAT [Concomitant]
     Dosage: DOSE WHEN NECESSARY

REACTIONS (1)
  - PERIPHERAL EMBOLISM [None]
